FAERS Safety Report 5948741-9 (Version None)
Quarter: 2008Q4

REPORT INFORMATION
  Report Type: 
  Country: None (occurrence: None)
  Receive Date: 20081111
  Receipt Date: 20081104
  Transmission Date: 20090506
  Serious: Yes (Other)
  Sender: FDA-Public Use
  Company Number: CA-ASTRAZENECA-2008UW21682

PATIENT
  Age: 67 Year
  Sex: Male

DRUGS (6)
  1. CRESTOR [Suspect]
     Route: 048
     Dates: start: 20050101
  2. BLOOD PRESSURE MEDICATIONS [Concomitant]
  3. ASPIRIN [Concomitant]
  4. COVERSYL [Concomitant]
  5. HYDROCHLOROTHIAZIDE [Concomitant]
  6. VITAMIN B-12 [Concomitant]

REACTIONS (4)
  - DEMYELINATION [None]
  - DYSURIA [None]
  - MUSCULAR WEAKNESS [None]
  - NEUROPATHY PERIPHERAL [None]
